FAERS Safety Report 6936478-9 (Version None)
Quarter: 2010Q3

REPORT INFORMATION
  Report Type: 
  Country: None (occurrence: None)
  Receive Date: 20100823
  Receipt Date: 20100811
  Transmission Date: 20110219
  Serious: Yes (Other)
  Sender: FDA-Public Use
  Company Number: US-SANOFI-AVENTIS-2010SA048063

PATIENT
  Age: 82 Year
  Sex: Male
  Weight: 73.63 kg

DRUGS (14)
  1. MULTAQ [Suspect]
     Indication: ATRIAL FIBRILLATION
     Route: 048
     Dates: start: 20100211, end: 20100501
  2. MULTAQ [Suspect]
     Indication: ATRIAL FLUTTER
     Route: 048
     Dates: start: 20100211, end: 20100501
  3. MULTAQ [Suspect]
     Route: 048
     Dates: start: 20100501
  4. MULTAQ [Suspect]
     Route: 048
     Dates: start: 20100501
  5. TRIAMTERENE [Concomitant]
     Dosage: THREE TIMES PER WEEK
  6. WARFARIN [Concomitant]
  7. ATORVASTATIN [Concomitant]
  8. SYNTHROID [Concomitant]
  9. DOXAZOSIN [Concomitant]
  10. CALCIUM [Concomitant]
  11. MELATONIN [Concomitant]
     Indication: SLEEP DISORDER
  12. VITAMIN E [Concomitant]
  13. ASPIRIN [Concomitant]
  14. MULTI-VITAMINS [Concomitant]

REACTIONS (4)
  - ASTHENIA [None]
  - ATRIAL FIBRILLATION [None]
  - FEELING ABNORMAL [None]
  - INCORRECT DOSE ADMINISTERED [None]
